FAERS Safety Report 10653496 (Version 6)
Quarter: 2015Q2

REPORT INFORMATION
  Report Type: Report from Study
  Country: NL (occurrence: NL)
  Receive Date: 20141216
  Receipt Date: 20150625
  Transmission Date: 20150821
  Serious: Yes (Hospitalization)
  Sender: FDA-Public Use
  Company Number: NL-ROCHE-1505332

PATIENT
  Age: 65 Year
  Sex: Female
  Weight: 92.6 kg

DRUGS (4)
  1. OXAZEPAM. [Concomitant]
     Active Substance: OXAZEPAM
     Indication: PROPHYLAXIS
     Route: 065
     Dates: start: 20140418
  2. OBINUTUZUMAB [Suspect]
     Active Substance: OBINUTUZUMAB
     Indication: NON-HODGKIN^S LYMPHOMA UNSPECIFIED HISTOLOGY INDOLENT
     Dosage: MOST RECENT DOSE PRIOR TO EVENT 27/NOV/2014
     Route: 042
     Dates: start: 20130307
  3. LORAZEPAM. [Concomitant]
     Active Substance: LORAZEPAM
     Indication: PROPHYLAXIS
     Route: 065
     Dates: start: 20140805
  4. BENDAMUSTINE [Suspect]
     Active Substance: BENDAMUSTINE
     Indication: NON-HODGKIN^S LYMPHOMA UNSPECIFIED HISTOLOGY INDOLENT
     Route: 042
     Dates: start: 20130307

REACTIONS (1)
  - Pancreatitis [Recovered/Resolved]

NARRATIVE: CASE EVENT DATE: 20141201
